FAERS Safety Report 9799602 (Version 2)
Quarter: 2015Q3

REPORT INFORMATION
  Report Type: Spontaneous
  Country: US (occurrence: US)
  Receive Date: 20140106
  Receipt Date: 20150806
  Transmission Date: 20151125
  Serious: No
  Sender: FDA-Public Use
  Company Number: US-GILEAD-2010-0031451

PATIENT
  Age: 56 Year
  Sex: Female
  Weight: 109.77 kg

DRUGS (18)
  1. JANUVIA [Concomitant]
     Active Substance: SITAGLIPTIN PHOSPHATE
  2. PEPCID [Concomitant]
     Active Substance: FAMOTIDINE
  3. XANAX [Concomitant]
     Active Substance: ALPRAZOLAM
  4. NEXIUM [Concomitant]
     Active Substance: ESOMEPRAZOLE MAGNESIUM
  5. NOVOLOG [Concomitant]
     Active Substance: INSULIN ASPART
  6. COUMADIN [Concomitant]
     Active Substance: WARFARIN SODIUM
  7. ASA [Concomitant]
     Active Substance: ASPIRIN
  8. LYRICA [Concomitant]
     Active Substance: PREGABALIN
  9. CYMBALTA [Concomitant]
     Active Substance: DULOXETINE HYDROCHLORIDE
  10. VITAMIN D [Concomitant]
     Active Substance: CHOLECALCIFEROL
  11. LETAIRIS [Suspect]
     Active Substance: AMBRISENTAN
     Indication: PULMONARY ARTERIAL HYPERTENSION
     Dates: start: 20100606
  12. REMODULIN [Concomitant]
     Active Substance: TREPROSTINIL
  13. LANTUS [Concomitant]
     Active Substance: INSULIN GLARGINE
  14. BENICAR [Concomitant]
     Active Substance: OLMESARTAN MEDOXOMIL
  15. COREG CR [Concomitant]
     Active Substance: CARVEDILOL PHOSPHATE
  16. LASIX [Concomitant]
     Active Substance: FUROSEMIDE
  17. TRILIPIX [Concomitant]
     Active Substance: FENOFIBRIC ACID
  18. ACTOS [Concomitant]
     Active Substance: PIOGLITAZONE HYDROCHLORIDE

REACTIONS (1)
  - Headache [Not Recovered/Not Resolved]

NARRATIVE: CASE EVENT DATE: 20100707
